FAERS Safety Report 17683539 (Version 2)
Quarter: 2020Q2

REPORT INFORMATION
  Report Type: Spontaneous
  Country: CH (occurrence: CH)
  Receive Date: 20200420
  Receipt Date: 20200525
  Transmission Date: 20200714
  Serious: Yes (Hospitalization, Other)
  Sender: FDA-Public Use
  Company Number: CH-BAXTER-2020BAX008441

PATIENT
  Age: 75 Year
  Sex: Female
  Weight: 54 kg

DRUGS (1)
  1. EXTRANEAL [Suspect]
     Active Substance: CALCIUM CHLORIDE\ICODEXTRIN\MAGNESIUM CHLORIDE\SODIUM CHLORIDE\SODIUM LACTATE
     Indication: PERITONEAL DIALYSIS
     Route: 033

REACTIONS (2)
  - Cerebrovascular accident [Recovered/Resolved with Sequelae]
  - Cerebral infarction [Unknown]

NARRATIVE: CASE EVENT DATE: 20200406
